FAERS Safety Report 6560682-5 (Version None)
Quarter: 2010Q1

REPORT INFORMATION
  Report Type: 
  Country: None (occurrence: None)
  Receive Date: 20100129
  Receipt Date: 20050310
  Transmission Date: 20100710
  Serious: No
  Sender: FDA-Public Use
  Company Number: US-ALLERGAN-200502454

PATIENT
  Sex: Female

DRUGS (2)
  1. BOTOX COSMETIC [Suspect]
     Indication: SKIN WRINKLING
     Dosage: GLABELLAR, FOREHEAD
     Route: 030
  2. MEDROL [Concomitant]
     Indication: PAIN IN EXTREMITY

REACTIONS (1)
  - EYELID PTOSIS [None]
